FAERS Safety Report 5662683-8 (Version None)
Quarter: 2008Q1

REPORT INFORMATION
  Report Type: 
  Country: None (occurrence: None)
  Receive Date: 20080313
  Receipt Date: 20080305
  Transmission Date: 20080703
  Serious: Yes (Death)
  Sender: FDA-Public Use
  Company Number: US-BAYER-200717762GPV

PATIENT
  Age: 46 Year
  Sex: Male

DRUGS (6)
  1. NEBIDO [Suspect]
     Indication: HYPOGONADISM
     Dosage: TOTAL DAILY DOSE: 750 MG
     Route: 030
     Dates: start: 20070409, end: 20070924
  2. LEVITRA [Suspect]
     Indication: DRUG USE FOR UNKNOWN INDICATION
     Route: 065
     Dates: start: 20070401, end: 20071006
  3. CADUET [Concomitant]
     Indication: DRUG USE FOR UNKNOWN INDICATION
     Dosage: TOTAL DAILY DOSE: 1 DF
     Route: 048
     Dates: start: 20060901, end: 20071006
  4. TOROL XL [Concomitant]
     Indication: DRUG USE FOR UNKNOWN INDICATION
     Dosage: TOTAL DAILY DOSE: 25 MG
     Route: 065
     Dates: start: 20060901, end: 20071006
  5. DIOVAN [Concomitant]
     Indication: DRUG USE FOR UNKNOWN INDICATION
     Dosage: TOTAL DAILY DOSE: 2 DF
     Route: 048
     Dates: start: 20060301, end: 20071006
  6. VIAGRA [Concomitant]
     Indication: DRUG USE FOR UNKNOWN INDICATION
     Route: 065
     Dates: start: 20060101, end: 20071006

REACTIONS (1)
  - MYOCARDIAL INFARCTION [None]
